FAERS Safety Report 8114191-2 (Version None)
Quarter: 2012Q1

REPORT INFORMATION
  Report Type: 
  Country: None (occurrence: None)
  Receive Date: 20120205
  Receipt Date: 20110415
  Transmission Date: 20120608
  Serious: No
  Sender: FDA-Public Use
  Company Number: US-ALLERGAN-1105342US

PATIENT
  Age: 75 Year
  Sex: Female

DRUGS (1)
  1. PRED FORTE [Suspect]
     Indication: POSTOPERATIVE CARE
     Dosage: UNK
     Dates: start: 20100901

REACTIONS (2)
  - ABDOMINAL DISCOMFORT [None]
  - PALPITATIONS [None]
